FAERS Safety Report 8258439-2 (Version None)
Quarter: 2012Q2

REPORT INFORMATION
  Report Type: 
  Country: None (occurrence: None)
  Receive Date: 20120403
  Receipt Date: 20120403
  Transmission Date: 20120825
  Serious: Yes (Life-Threatening, Hospitalization, Other)
  Sender: FDA-Public Use
  Company Number: None

PATIENT
  Sex: Male
  Weight: 97.5234 kg

DRUGS (1)
  1. XYREM [Suspect]
     Indication: INSOMNIA
     Dosage: 60ML EVERY 2 1/2 HRS - 4 HRS BY MOUTH
     Route: 048
     Dates: start: 20120217

REACTIONS (6)
  - HYPOPNOEA [None]
  - AGGRESSION [None]
  - DISORIENTATION [None]
  - SCREAMING [None]
  - RESTLESSNESS [None]
  - CONVULSION [None]
